FAERS Safety Report 7504347-1 (Version None)
Quarter: 2011Q2

REPORT INFORMATION
  Report Type: 
  Country: None (occurrence: None)
  Receive Date: 20110525
  Receipt Date: 20110512
  Transmission Date: 20111010
  Serious: Yes (Hospitalization)
  Sender: FDA-Public Use
  Company Number: JP-UCBSA-014653

PATIENT
  Sex: Female

DRUGS (25)
  1. FOLIC ACID [Concomitant]
     Dates: start: 20081224
  2. KETOPROFEN [Concomitant]
     Dosage: QS
     Dates: start: 20090325
  3. LITHIUM CARBONATE [Concomitant]
     Dates: start: 20080507
  4. CERTOLIZUMAB PEGOL [Suspect]
     Route: 058
     Dates: start: 20110401
  5. BERAPROST SODIUM [Concomitant]
     Dates: start: 20080213
  6. SULPIRIDE [Concomitant]
     Dates: start: 20061221
  7. SENNOSIDE [Concomitant]
     Dates: start: 20100527
  8. MECOBALAMIN [Concomitant]
     Dates: start: 20060614
  9. MELOXICAM [Concomitant]
     Dates: start: 20080806
  10. KETOPROFEN [Concomitant]
     Dosage: QS
     Dates: start: 20080806
  11. SERTRALINE HYDROCHLORIDE [Concomitant]
     Dates: start: 20071121
  12. CARBAMAZEPINE [Concomitant]
     Dates: start: 20070201
  13. ETIZOLAM [Concomitant]
     Dates: start: 20070201
  14. MILNACIPRAN HYDROCHLORIDE [Concomitant]
     Dates: start: 20061221
  15. TRIAZOLAM [Concomitant]
     Dates: start: 20070221
  16. CERTOLIZUMAB PEGOL [Suspect]
     Route: 058
     Dates: start: 20091029, end: 20110101
  17. AN EXTRACT OBTAINED FROM INFLAMMATORY RABBIT SKIN INOCULA [Concomitant]
     Dosage: 3 TABLETS DAILY
     Dates: start: 20080806
  18. METHOTREXATE [Concomitant]
     Dosage: 8MG(4MG-2MG-2MG)/WEEK
     Dates: start: 20081222
  19. ATORVASTATIN CALCIUM [Concomitant]
     Dates: start: 20060406
  20. KETOPROFEN [Concomitant]
     Dosage: QS
     Dates: start: 20090423
  21. CERTOLIZUMAB PEGOL [Suspect]
     Indication: RHEUMATOID ARTHRITIS
     Dosage: C870-041
     Route: 058
     Dates: start: 20090416, end: 20091015
  22. SOFALCONE [Concomitant]
     Dates: start: 20100415
  23. LANSOPRAZOLE [Concomitant]
     Dates: start: 20070129
  24. FERROUS SULFATE TAB [Concomitant]
     Dates: start: 20090820
  25. IMIDAPRIL HYDROCHLORIDE [Concomitant]
     Dates: start: 20090806

REACTIONS (2)
  - RHEUMATOID ARTHRITIS [None]
  - DEMENTIA ALZHEIMER'S TYPE [None]
